FAERS Safety Report 16223379 (Version 2)
Quarter: 2019Q3

REPORT INFORMATION
  Report Type: Spontaneous
  Country: US (occurrence: US)
  Receive Date: 20190422
  Receipt Date: 20190724
  Transmission Date: 20191004
  Serious: Yes (Other)
  Sender: FDA-Public Use
  Company Number: US-PFIZER INC-2019170550

PATIENT
  Age: 49 Year
  Sex: Male

DRUGS (19)
  1. TOPAMAX [Concomitant]
     Active Substance: TOPIRAMATE
     Indication: PAIN
     Dosage: UNK
     Dates: start: 2017
  2. PRILOSEC [Suspect]
     Active Substance: OMEPRAZOLE MAGNESIUM
     Indication: GASTROOESOPHAGEAL REFLUX DISEASE
     Dosage: 40 MG, 1X/DAY
  3. PANTOPRAZOLE [Suspect]
     Active Substance: PANTOPRAZOLE
     Dosage: UNK
  4. TRULICITY [Concomitant]
     Active Substance: DULAGLUTIDE
     Indication: BLOOD GLUCOSE ABNORMAL
     Dosage: UNK
     Dates: start: 201901
  5. PROPANOLOL [Concomitant]
     Active Substance: PROPRANOLOL HYDROCHLORIDE
     Indication: BLOOD PRESSURE ABNORMAL
     Dosage: UNK
     Dates: start: 2018, end: 2019
  6. OMEPRAZOLE. [Suspect]
     Active Substance: OMEPRAZOLE
     Dosage: UNK
  7. FIBER [Concomitant]
     Active Substance: PSYLLIUM HUSK
     Indication: CONSTIPATION
     Dosage: UNK
     Dates: start: 2018
  8. PROTONIX [Suspect]
     Active Substance: PANTOPRAZOLE SODIUM
     Indication: GASTROOESOPHAGEAL REFLUX DISEASE
     Dosage: 40 MG, 1X/DAY
  9. LACTULOSE. [Concomitant]
     Active Substance: LACTULOSE
     Indication: HYPERAMMONAEMIA
     Dosage: UNK
     Dates: start: 201902
  10. MOVANTIK [Concomitant]
     Active Substance: NALOXEGOL OXALATE
     Indication: CONSTIPATION
     Dosage: UNK
     Dates: start: 2018
  11. ARIPIPRAZOLE. [Concomitant]
     Active Substance: ARIPIPRAZOLE
     Indication: SLEEP DISORDER
     Dosage: UNK
     Dates: start: 201812
  12. LOSARTAN. [Concomitant]
     Active Substance: LOSARTAN
     Indication: BLOOD PRESSURE ABNORMAL
     Dosage: UNK
     Dates: start: 2018
  13. DULOXETINE. [Concomitant]
     Active Substance: DULOXETINE
     Indication: PAIN
     Dosage: UNK
     Dates: start: 2017
  14. PREVACID [Suspect]
     Active Substance: LANSOPRAZOLE
     Indication: GASTROOESOPHAGEAL REFLUX DISEASE
     Dosage: UNK
  15. XARELTO [Concomitant]
     Active Substance: RIVAROXABAN
     Indication: THROMBOSIS
     Dosage: UNK
     Dates: start: 201905
  16. PROTONIX [Suspect]
     Active Substance: PANTOPRAZOLE SODIUM
     Dosage: 40 MG, UNK
  17. FUROSEMIDE. [Concomitant]
     Active Substance: FUROSEMIDE
     Indication: SWELLING
     Dosage: UNK
     Dates: start: 2017
  18. MORPHINE [Concomitant]
     Active Substance: MORPHINE
     Indication: PAIN
     Dosage: UNK
     Dates: start: 2017
  19. VITAMIN D [Concomitant]
     Active Substance: VITAMIN D NOS
     Indication: VITAMIN D DECREASED
     Dosage: UNK
     Dates: start: 2018

REACTIONS (3)
  - Chronic kidney disease [Not Recovered/Not Resolved]
  - Acute kidney injury [Unknown]
  - Renal failure [Unknown]

NARRATIVE: CASE EVENT DATE: 2017
